FAERS Safety Report 5816071-1 (Version None)
Quarter: 2008Q3

REPORT INFORMATION
  Report Type: 
  Country: None (occurrence: None)
  Receive Date: 20080716
  Receipt Date: 20080716
  Transmission Date: 20090109
  Serious: Yes (Hospitalization)
  Sender: FDA-Public Use
  Company Number: None

PATIENT
  Age: 94 Year
  Sex: Female
  Weight: 87.6 kg

DRUGS (13)
  1. AZITHROMYCIN [Suspect]
     Indication: RESPIRATORY DISORDER
     Dosage: 250MG DAILY PO
     Route: 048
     Dates: start: 20070904, end: 20070906
  2. BENZONATATE [Concomitant]
  3. ALPRAZOLAM [Concomitant]
  4. METHYLPREDNISOLONE [Concomitant]
  5. ALBUTEROL SULFATE AND IPRATROPIUM BROMIDE [Concomitant]
  6. CLOPIDOGREL [Concomitant]
  7. SIMVASTATIN [Concomitant]
  8. BENAZAPRIL/AMLODIPINE [Concomitant]
  9. ASPIRIN [Concomitant]
  10. ESOMEPRAZOLE [Concomitant]
  11. LEVOTHYROXINE SODIUM [Concomitant]
  12. MAGNESIUM GLUCONATE [Concomitant]
  13. HEPARIN [Concomitant]

REACTIONS (4)
  - BRONCHITIS [None]
  - CEREBROVASCULAR ACCIDENT [None]
  - EARLY MORNING AWAKENING [None]
  - HALLUCINATION, VISUAL [None]
